FAERS Safety Report 17499721 (Version 2)
Quarter: 2022Q2

REPORT INFORMATION
  Report Type: Spontaneous
  Country: AU (occurrence: AU)
  Receive Date: 20200304
  Receipt Date: 20220409
  Transmission Date: 20220721
  Serious: Yes (Other)
  Sender: FDA-Public Use
  Company Number: AU-BOEHRINGERINGELHEIM-2020-BI-011740

PATIENT
  Age: 64 Year
  Sex: Male

DRUGS (4)
  1. DABIGATRAN [Suspect]
     Active Substance: DABIGATRAN
     Indication: Atrial fibrillation
     Route: 048
  2. AMIODARONE [Concomitant]
     Active Substance: AMIODARONE
     Indication: Product used for unknown indication
     Route: 065
  3. FUROSEMIDE [Concomitant]
     Active Substance: FUROSEMIDE
     Indication: Product used for unknown indication
     Route: 065
  4. RAMIPRIL [Concomitant]
     Active Substance: RAMIPRIL
     Indication: Product used for unknown indication
     Route: 065

REACTIONS (7)
  - Acute kidney injury [Unknown]
  - Haemorrhage [Unknown]
  - Coagulopathy [Unknown]
  - Anticoagulation drug level increased [Recovering/Resolving]
  - Anticoagulation drug level increased [Unknown]
  - Coagulation test abnormal [Unknown]
  - Thrombin time prolonged [Unknown]
